FAERS Safety Report 24066702 (Version 1)
Quarter: 2024Q3

REPORT INFORMATION
  Report Type: Spontaneous
  Country: US (occurrence: None)
  Receive Date: 20240709
  Receipt Date: 20240709
  Transmission Date: 20241017
  Serious: Yes (Hospitalization)
  Sender: Public
  Company Number: None

PATIENT
  Age: 64 Year
  Sex: Female
  Weight: 69.7 kg

DRUGS (1)
  1. TRABECTEDIN [Suspect]
     Active Substance: TRABECTEDIN
     Dates: end: 20240528

REACTIONS (5)
  - Malignant neoplasm progression [None]
  - Leiomyosarcoma [None]
  - Therapy cessation [None]
  - Haemoglobin decreased [None]
  - White blood cell count increased [None]

NARRATIVE: CASE EVENT DATE: 20240615
